FAERS Safety Report 6095343-2 (Version None)
Quarter: 2009Q1

REPORT INFORMATION
  Report Type: 
  Country: None (occurrence: None)
  Receive Date: 20090227
  Receipt Date: 20080415
  Transmission Date: 20090719
  Serious: Yes (Other)
  Sender: FDA-Public Use
  Company Number: A0714627A

PATIENT
  Age: 46 Year
  Sex: Female

DRUGS (7)
  1. LAMICTAL [Suspect]
     Indication: BIPOLAR DISORDER
     Dosage: 375MG PER DAY
     Route: 048
     Dates: start: 20020701
  2. LEVOTHYROXINE SODIUM [Concomitant]
     Route: 048
  3. HORMONE REPLACEMENT [Concomitant]
     Route: 048
  4. METFORMIN [Concomitant]
     Route: 048
  5. TRAZODONE HCL [Concomitant]
     Route: 048
  6. LOVASTATIN [Concomitant]
     Route: 048
  7. GLYBURIDE [Concomitant]
     Route: 048

REACTIONS (2)
  - PRURITUS [None]
  - RASH [None]
